FAERS Safety Report 6458597-6 (Version None)
Quarter: 2009Q4

REPORT INFORMATION
  Report Type: 
  Country: None (occurrence: None)
  Receive Date: 20091126
  Receipt Date: 20091116
  Transmission Date: 20100525
  Serious: Yes (Hospitalization, Other)
  Sender: FDA-Public Use
  Company Number: US-ELI_LILLY_AND_COMPANY-US200911004720

PATIENT
  Age: 66 Year
  Sex: Male

DRUGS (3)
  1. EFFIENT [Suspect]
     Indication: DEVICE OCCLUSION
     Dosage: 10 MG, DAILY (1/D)
     Dates: start: 20091101, end: 20091101
  2. PLAVIX [Concomitant]
     Dates: start: 20091101
  3. ASPIRIN [Concomitant]
     Dates: start: 20091101

REACTIONS (3)
  - DRUG DOSE OMISSION [None]
  - MECHANICAL VENTILATION [None]
  - PLATELET COUNT DECREASED [None]
